FAERS Safety Report 13639189 (Version 1)
Quarter: 2017Q2

REPORT INFORMATION
  Report Type: Spontaneous
  Country: US (occurrence: US)
  Receive Date: 20170609
  Receipt Date: 20170609
  Transmission Date: 20170830
  Serious: No
  Sender: FDA-Public Use
  Company Number: US-ROCHE-1071682

PATIENT
  Sex: Female

DRUGS (2)
  1. KLONOPIN [Suspect]
     Active Substance: CLONAZEPAM
     Indication: PANIC REACTION
  2. KLONOPIN [Suspect]
     Active Substance: CLONAZEPAM
     Indication: ANXIETY

REACTIONS (8)
  - Fear [Unknown]
  - Dizziness [Unknown]
  - Arthralgia [Unknown]
  - Depression [Unknown]
  - Muscle twitching [Unknown]
  - Tremor [Unknown]
  - Therapeutic response decreased [Unknown]
  - Insomnia [Unknown]
